FAERS Safety Report 10741378 (Version 2)
Quarter: 2015Q2

REPORT INFORMATION
  Report Type: Spontaneous
  Country: SE (occurrence: SE)
  Receive Date: 20150127
  Receipt Date: 20150418
  Transmission Date: 20150821
  Serious: Yes (Life-Threatening)
  Sender: FDA-Public Use
  Company Number: SE-AUROBINDO-AUR-APL-2015-00595

PATIENT
  Age: 55 Year
  Sex: Male

DRUGS (1)
  1. FINASTERIDE 5MG FILM-COATED TABLETS [Suspect]
     Active Substance: FINASTERIDE
     Indication: PRODUCT USED FOR UNKNOWN INDICATION
     Route: 065

REACTIONS (2)
  - Premature ageing [Not Recovered/Not Resolved]
  - Erectile dysfunction [Not Recovered/Not Resolved]
